FAERS Safety Report 20852328 (Version 1)
Quarter: 2022Q2

REPORT INFORMATION
  Report Type: Spontaneous
  Country: JP (occurrence: JP)
  Receive Date: 20220520
  Receipt Date: 20220520
  Transmission Date: 20220721
  Serious: Yes (Death, Other)
  Sender: FDA-Public Use
  Company Number: JP-TAKEDA-2022TJP048978

PATIENT
  Age: 8 Decade
  Sex: Male

DRUGS (2)
  1. CABOMETYX [Suspect]
     Active Substance: CABOZANTINIB S-MALATE
     Indication: Renal cell carcinoma
     Dosage: 20 MG, QD
     Route: 048
     Dates: start: 20210412, end: 20220401
  2. DENOSUMAB [Concomitant]
     Active Substance: DENOSUMAB
     Indication: Metastases to bone
     Dosage: UNK
     Route: 065

REACTIONS (5)
  - Dialysis related complication [Fatal]
  - Chronic kidney disease [Unknown]
  - Renal cell carcinoma [Unknown]
  - Condition aggravated [Unknown]
  - Osteonecrosis of jaw [Unknown]
